FAERS Safety Report 14157811 (Version 2)
Quarter: 2018Q1

REPORT INFORMATION
  Report Type: Report from Study
  Country: US (occurrence: US)
  Receive Date: 20171103
  Receipt Date: 20180213
  Transmission Date: 20180508
  Serious: No
  Sender: FDA-Public Use
  Company Number: US-PUMA BIOTECHNOLOGY, LTD.-2017US013727

PATIENT

DRUGS (2)
  1. IMODIUM [Concomitant]
     Active Substance: LOPERAMIDE HYDROCHLORIDE
     Indication: DIARRHOEA
  2. NERLYNX [Suspect]
     Active Substance: NERATINIB
     Indication: PRODUCT USED FOR UNKNOWN INDICATION
     Dosage: 6 TABLETS, DAILY
     Route: 048
     Dates: end: 20171021

REACTIONS (7)
  - Lymph node haemorrhage [Unknown]
  - Early satiety [Unknown]
  - Decreased appetite [Unknown]
  - Pain [Unknown]
  - Infection [Unknown]
  - Fatigue [Unknown]
  - Nausea [Unknown]
